FAERS Safety Report 7554532-8 (Version None)
Quarter: 2011Q2

REPORT INFORMATION
  Report Type: 
  Country: None (occurrence: None)
  Receive Date: 20110617
  Receipt Date: 20110601
  Transmission Date: 20111010
  Serious: Yes (Hospitalization, Other)
  Sender: FDA-Public Use
  Company Number: B0726716A

PATIENT

DRUGS (2)
  1. LAMICTAL [Suspect]
     Route: 065
  2. KEPPRA [Suspect]
     Route: 065

REACTIONS (6)
  - INJURY [None]
  - MEMORY IMPAIRMENT [None]
  - CONVULSION [None]
  - TOXICITY TO VARIOUS AGENTS [None]
  - HYPOAESTHESIA [None]
  - FALL [None]
